FAERS Safety Report 13844841 (Version 1)
Quarter: 2017Q3

REPORT INFORMATION
  Report Type: Spontaneous
  Country: US (occurrence: US)
  Receive Date: 20170808
  Receipt Date: 20170808
  Transmission Date: 20171127
  Serious: Yes (Other)
  Sender: FDA-Public Use
  Company Number: US-BAYER-2017-148600

PATIENT
  Age: 36 Year
  Sex: Female

DRUGS (2)
  1. MIRENA [Suspect]
     Active Substance: LEVONORGESTREL
     Dosage: 20 MCG/24HR, CONT
     Route: 015
     Dates: start: 20140212, end: 20170403
  2. MIRENA [Suspect]
     Active Substance: LEVONORGESTREL
     Dosage: 20 MCG/24HR, CONT
     Route: 015
     Dates: start: 20131126, end: 20140212

REACTIONS (11)
  - Musculoskeletal pain [None]
  - Nausea [None]
  - Vision blurred [None]
  - Papilloedema [None]
  - Headache [None]
  - Back pain [None]
  - Vomiting [None]
  - Tinnitus [None]
  - Neck pain [None]
  - Idiopathic intracranial hypertension [None]
  - Migraine with aura [None]

NARRATIVE: CASE EVENT DATE: 20160921
